FAERS Safety Report 6955465-8 (Version None)
Quarter: 2010Q3

REPORT INFORMATION
  Report Type: 
  Country: None (occurrence: None)
  Receive Date: 20100830
  Receipt Date: 20100818
  Transmission Date: 20110219
  Serious: Yes (Death, Other)
  Sender: FDA-Public Use
  Company Number: FI-PFIZER INC-2010103724

PATIENT
  Age: 76 Year
  Sex: Male

DRUGS (1)
  1. ECALTA [Suspect]
     Indication: FUNGAL INFECTION
     Dosage: UNK
     Dates: start: 20090908

REACTIONS (2)
  - DEATH [None]
  - LIVER INJURY [None]
